FAERS Safety Report 9722060 (Version 1)
Quarter: 2013Q4

REPORT INFORMATION
  Report Type: Spontaneous
  Country: US (occurrence: US)
  Receive Date: 20131202
  Receipt Date: 20131202
  Transmission Date: 20140711
  Serious: No
  Sender: FDA-Public Use
  Company Number: US-BIOGENIDEC-2013BI087106

PATIENT
  Age: 61 Year
  Sex: Female
  Weight: 58 kg

DRUGS (9)
  1. TECFIDERA [Suspect]
     Indication: PRODUCT USED FOR UNKNOWN INDICATION
     Route: 048
  2. TECFIDERA [Suspect]
     Indication: PRODUCT USED FOR UNKNOWN INDICATION
     Route: 048
  3. DILANTIN [Concomitant]
  4. LYRICA [Concomitant]
  5. TEGRETOL [Concomitant]
  6. BACLOFEN [Concomitant]
  7. THERA (PRESUMED MULTIVITAMINS) [Concomitant]
  8. CALCIUM 500 [Concomitant]
  9. VITAMIN B12 [Concomitant]

REACTIONS (3)
  - Rash [Recovered/Resolved]
  - Erythema [Unknown]
  - Burning sensation [Unknown]
